FAERS Safety Report 13995539 (Version 4)
Quarter: 2017Q4

REPORT INFORMATION
  Report Type: Report from Study
  Country: IT (occurrence: IT)
  Receive Date: 20170921
  Receipt Date: 20171030
  Transmission Date: 20180321
  Serious: Yes (Death)
  Sender: FDA-Public Use
  Company Number: IT-ROCHE-1992687

PATIENT
  Age: 70 Year
  Sex: Female

DRUGS (3)
  1. IBRITUMOMAB TIUXETAN [Suspect]
     Active Substance: IBRITUMOMAB TIUXETAN
     Indication: PRODUCT USED FOR UNKNOWN INDICATION
     Route: 065
  2. RITUXIMAB. [Suspect]
     Active Substance: RITUXIMAB
     Indication: B-CELL LYMPHOMA
     Dosage: DAY 1 W1-4 (INDUCTION THERAPY)
     Route: 042
  3. RITUXIMAB. [Suspect]
     Active Substance: RITUXIMAB
     Dosage: DAY 1 EVERY 8 WEEK ?MAINTENANCE THERAPY?ON 05/MAR/2009, SHE RECEIVED LAST DOSE OF RITUXIMAB.
     Route: 042
     Dates: start: 20060726, end: 20090305

REACTIONS (1)
  - Myelodysplastic syndrome [Fatal]

NARRATIVE: CASE EVENT DATE: 20150309
